FAERS Safety Report 12499122 (Version 2)
Quarter: 2016Q3

REPORT INFORMATION
  Report Type: Spontaneous
  Country: US (occurrence: US)
  Receive Date: 20160627
  Receipt Date: 20160708
  Transmission Date: 20161109
  Serious: Yes (Other)
  Sender: FDA-Public Use
  Company Number: US-AUROBINDO-AUR-APL-2016-08041

PATIENT
  Age: 60 Year
  Sex: Male

DRUGS (3)
  1. PREDNISONE 5MG [Suspect]
     Active Substance: PREDNISONE
     Indication: IMMUNOSUPPRESSANT DRUG THERAPY
     Dosage: 5 MG, DAILY
     Route: 065
  2. TACROLIMUS. [Suspect]
     Active Substance: TACROLIMUS
     Indication: IMMUNOSUPPRESSANT DRUG THERAPY
     Dosage: 3MG IN THE MORNING, 4MG AT NIGHT
     Route: 065
  3. MYCOPHENOLATE MOFETIL. [Suspect]
     Active Substance: MYCOPHENOLATE MOFETIL
     Indication: IMMUNOSUPPRESSANT DRUG THERAPY
     Dosage: 500 MG, TWO TIMES A DAY
     Route: 065

REACTIONS (4)
  - Chills [Recovered/Resolved]
  - Haematuria [Recovered/Resolved]
  - Aspergilloma [Recovered/Resolved]
  - Night sweats [Recovered/Resolved]
